FAERS Safety Report 9880333 (Version 1)
Quarter: 2014Q1

REPORT INFORMATION
  Report Type: Spontaneous
  Country: SE (occurrence: SE)
  Receive Date: 20140207
  Receipt Date: 20140207
  Transmission Date: 20141002
  Serious: Yes (Hospitalization)
  Sender: FDA-Public Use
  Company Number: PHHY2014SE011288

PATIENT
  Age: 71 Year
  Sex: Female

DRUGS (1)
  1. RIMACTAN SANDOZ [Suspect]
     Dosage: 300 MG, BID
     Dates: start: 201310

REACTIONS (3)
  - Chest pain [Unknown]
  - Nausea [Unknown]
  - Vomiting [Unknown]
